FAERS Safety Report 25109288 (Version 3)
Quarter: 2025Q3

REPORT INFORMATION
  Report Type: Spontaneous
  Country: US (occurrence: US)
  Receive Date: 20250323
  Receipt Date: 20250819
  Transmission Date: 20251020
  Serious: No
  Sender: SANOFI AVENTIS
  Company Number: US-SA-2025SA082740

PATIENT
  Age: 77 Year
  Sex: Female

DRUGS (2)
  1. DUPIXENT [Suspect]
     Active Substance: DUPILUMAB
     Indication: Asthma
     Route: 058
     Dates: start: 20250318, end: 20250318
  2. DUPIXENT [Suspect]
     Active Substance: DUPILUMAB
     Indication: Arthropathy
     Dosage: 300 MG, QOW
     Route: 058
     Dates: start: 202502

REACTIONS (8)
  - Dyspnoea [Unknown]
  - Cough [Unknown]
  - Injection site irritation [Unknown]
  - Arthropathy [Unknown]
  - Sneezing [Unknown]
  - Nasal congestion [Unknown]
  - Injection site rash [Unknown]
  - Product use in unapproved indication [Unknown]

NARRATIVE: CASE EVENT DATE: 20250101
